FAERS Safety Report 19649140 (Version 1)
Quarter: 2021Q3

REPORT INFORMATION
  Report Type: Spontaneous
  Country: CA (occurrence: CA)
  Receive Date: 20210803
  Receipt Date: 20210803
  Transmission Date: 20211014
  Serious: Yes (Other)
  Sender: FDA-Public Use
  Company Number: CA-SA-2021SA248891

PATIENT
  Age: 24 Year
  Sex: Female

DRUGS (17)
  1. CICLOSPORIN [Suspect]
     Active Substance: CYCLOSPORINE
     Indication: JUVENILE IDIOPATHIC ARTHRITIS
  2. ANAKINRA [Concomitant]
     Active Substance: ANAKINRA
  3. PREDNISONE. [Suspect]
     Active Substance: PREDNISONE
     Indication: JUVENILE IDIOPATHIC ARTHRITIS
  4. FOLIC ACID. [Suspect]
     Active Substance: FOLIC ACID
     Indication: JUVENILE IDIOPATHIC ARTHRITIS
  5. AMITRIPTYLINE [Suspect]
     Active Substance: AMITRIPTYLINE
     Indication: JUVENILE IDIOPATHIC ARTHRITIS
  6. RITUXIMAB. [Suspect]
     Active Substance: RITUXIMAB
     Indication: JUVENILE IDIOPATHIC ARTHRITIS
  7. SULFASALAZINE. [Suspect]
     Active Substance: SULFASALAZINE
     Indication: JUVENILE IDIOPATHIC ARTHRITIS
  8. REMICADE [Suspect]
     Active Substance: INFLIXIMAB
     Indication: JUVENILE IDIOPATHIC ARTHRITIS
     Dosage: 400 MG
     Route: 042
  9. ERELZI [Suspect]
     Active Substance: ETANERCEPT-SZZS
     Indication: JUVENILE IDIOPATHIC ARTHRITIS
     Dosage: 25 MG, QW
  10. HYDROXYCHLOROQUINE SULFATE. [Suspect]
     Active Substance: HYDROXYCHLOROQUINE SULFATE
     Indication: PRODUCT USED FOR UNKNOWN INDICATION
  11. LEFLUNOMIDE. [Suspect]
     Active Substance: LEFLUNOMIDE
     Indication: JUVENILE IDIOPATHIC ARTHRITIS
     Dosage: UNK
  12. METHOTREXATE. [Suspect]
     Active Substance: METHOTREXATE
     Indication: JUVENILE IDIOPATHIC ARTHRITIS
     Dosage: UNK
  13. OXYCODONE [Suspect]
     Active Substance: OXYCODONE
     Indication: JUVENILE IDIOPATHIC ARTHRITIS
  14. MEDROXYPROGESTERONE ACETATE. [Suspect]
     Active Substance: MEDROXYPROGESTERONE ACETATE
     Indication: JUVENILE IDIOPATHIC ARTHRITIS
  15. NAPROSYNE [Suspect]
     Active Substance: NAPROXEN
     Indication: JUVENILE IDIOPATHIC ARTHRITIS
  16. AZATHIOPRINE. [Suspect]
     Active Substance: AZATHIOPRINE
     Indication: JUVENILE IDIOPATHIC ARTHRITIS
  17. HYDROXYCHLOROQUINE [Concomitant]
     Active Substance: HYDROXYCHLOROQUINE

REACTIONS (6)
  - Vomiting [Unknown]
  - Product use in unapproved indication [Unknown]
  - Diarrhoea [Unknown]
  - Off label use [Unknown]
  - Clear cell renal cell carcinoma [Unknown]
  - Renal mass [Unknown]
